FAERS Safety Report 19104842 (Version 1)
Quarter: 2021Q2

REPORT INFORMATION
  Report Type: Spontaneous
  Country: PL (occurrence: PL)
  Receive Date: 20210407
  Receipt Date: 20210407
  Transmission Date: 20210717
  Serious: Yes (Death)
  Sender: FDA-Public Use
  Company Number: NVSC2021PL078410

PATIENT
  Age: 12 Year
  Sex: Male

DRUGS (3)
  1. PROPRANOLOL [Suspect]
     Active Substance: PROPRANOLOL HYDROCHLORIDE
     Indication: ANGIOSARCOMA
     Dosage: UNK (14 CYCLES)
     Route: 065
  2. VINBLASTINE [Suspect]
     Active Substance: VINBLASTINE
     Indication: ANGIOSARCOMA
     Dosage: UNK (14 CYCLES)
     Route: 065
  3. METHOTREXATE. [Suspect]
     Active Substance: METHOTREXATE
     Indication: ANGIOSARCOMA
     Dosage: UNK UNK, 14 CYCLES
     Route: 065

REACTIONS (3)
  - Angiosarcoma [Fatal]
  - Product use in unapproved indication [Unknown]
  - Drug intolerance [Unknown]
